FAERS Safety Report 25788860 (Version 1)
Quarter: 2025Q3

REPORT INFORMATION
  Report Type: Spontaneous
  Country: JP (occurrence: JP)
  Receive Date: 20250911
  Receipt Date: 20250911
  Transmission Date: 20251021
  Serious: Yes (Hospitalization)
  Sender: JOHNSON AND JOHNSON
  Company Number: JP-JNJFOC-20250910174

PATIENT
  Age: 57 Year
  Sex: Female

DRUGS (2)
  1. INVEGA [Suspect]
     Active Substance: PALIPERIDONE
     Indication: Product used for unknown indication
     Route: 048
  2. INVEGA [Suspect]
     Active Substance: PALIPERIDONE
     Route: 048

REACTIONS (8)
  - Myalgia [Unknown]
  - Arthralgia [Unknown]
  - Pyrexia [Unknown]
  - Immobile [Unknown]
  - Dehydration [Unknown]
  - Fatigue [Unknown]
  - Physical deconditioning [Unknown]
  - Off label use [Unknown]
